FAERS Safety Report 19768911 (Version 1)
Quarter: 2021Q3

REPORT INFORMATION
  Report Type: Spontaneous
  Country: JP (occurrence: JP)
  Receive Date: 20210831
  Receipt Date: 20210831
  Transmission Date: 20211014
  Serious: Yes (Death, Other)
  Sender: FDA-Public Use
  Company Number: PHHY2015JP129833

PATIENT
  Sex: Female

DRUGS (1)
  1. VOTRIENT [Suspect]
     Active Substance: PAZOPANIB HYDROCHLORIDE
     Indication: SOFT TISSUE SARCOMA
     Dosage: 800 MG, 1D
     Route: 048
     Dates: start: 20150120, end: 201503

REACTIONS (3)
  - Metastases to lung [Fatal]
  - Malignant neoplasm progression [Fatal]
  - Soft tissue sarcoma [Fatal]

NARRATIVE: CASE EVENT DATE: 201503
